FAERS Safety Report 5822296-1 (Version None)
Quarter: 2008Q3

REPORT INFORMATION
  Report Type: 
  Country: None (occurrence: None)
  Receive Date: 20080725
  Receipt Date: 20080427
  Transmission Date: 20090109
  Serious: No
  Sender: FDA-Public Use
  Company Number: US-AMGEN-KDL276835

PATIENT
  Sex: Female

DRUGS (1)
  1. PROCRIT [Suspect]
     Indication: DRUG USE FOR UNKNOWN INDICATION
     Dates: start: 20050101

REACTIONS (10)
  - BLOOD COUNT ABNORMAL [None]
  - DRY SKIN [None]
  - MOBILITY DECREASED [None]
  - OEDEMA PERIPHERAL [None]
  - OPEN WOUND [None]
  - RASH GENERALISED [None]
  - SECRETION DISCHARGE [None]
  - SKIN WRINKLING [None]
  - SWELLING [None]
  - THERMAL BURN [None]
